FAERS Safety Report 24086048 (Version 1)
Quarter: 2024Q3

REPORT INFORMATION
  Report Type: Spontaneous
  Country: US (occurrence: US)
  Receive Date: 20240712
  Receipt Date: 20240712
  Transmission Date: 20241017
  Serious: Yes (Hospitalization, Other)
  Sender: AMGEN
  Company Number: US-AMGEN-USASP2024134522

PATIENT
  Age: 30 Year
  Sex: Female

DRUGS (4)
  1. INFLIXIMAB [Suspect]
     Active Substance: INFLIXIMAB
     Indication: Colitis ulcerative
     Dosage: UNK
     Route: 065
  2. PREDNISONE [Suspect]
     Active Substance: PREDNISONE
     Indication: Overlap syndrome
     Dosage: UNK
     Route: 065
  3. VEDOLIZUMAB [Concomitant]
     Active Substance: VEDOLIZUMAB
     Indication: Colitis ulcerative
  4. USTEKINUMAB [Concomitant]
     Active Substance: USTEKINUMAB
     Indication: Colitis ulcerative

REACTIONS (6)
  - Colitis ulcerative [Recovered/Resolved]
  - Cholangitis sclerosing [Unknown]
  - Autoimmune hepatitis [Unknown]
  - Overlap syndrome [Unknown]
  - Treatment failure [Unknown]
  - Therapy partial responder [Unknown]
